FAERS Safety Report 9536377 (Version 1)
Quarter: 2013Q2

REPORT INFORMATION
  Report Type: Spontaneous
  Country: US (occurrence: None)
  Receive Date: 20130507
  Receipt Date: 20130507
  Transmission Date: 20140414
  Serious: No
  Sender: FDA-Public Use
  Company Number: PHEH2013US001427

PATIENT
  Sex: Male

DRUGS (3)
  1. AFINITOR (RAD) [Suspect]
     Indication: PANCREATIC NEUROENDOCRINE TUMOUR
  2. OCTREOTIDE [Suspect]
  3. ADRIAMYCIN (DOXORUBICIN) INJ. USP 10MG/5ML [Suspect]

REACTIONS (2)
  - Cardiac failure [None]
  - Ejection fraction decreased [None]
